FAERS Safety Report 20730877 (Version 1)
Quarter: 2022Q2

REPORT INFORMATION
  Report Type: Report from Study
  Country: FR (occurrence: FR)
  Receive Date: 20220420
  Receipt Date: 20220420
  Transmission Date: 20220721
  Serious: Yes (Other)
  Sender: FDA-Public Use
  Company Number: FR-GLAXOSMITHKLINE-FRCH2022GSK014479

PATIENT

DRUGS (4)
  1. TERBINAFINE [Suspect]
     Active Substance: TERBINAFINE
     Indication: Dermatophytosis
     Dosage: 250 MG, 1D
     Route: 048
     Dates: start: 2021
  2. TERBINAFINE [Suspect]
     Active Substance: TERBINAFINE
     Indication: Trichophytosis
  3. GRISEOFULVIN [Suspect]
     Active Substance: GRISEOFULVIN
     Indication: Dermatophytosis
     Dosage: 1 G, 1D
     Route: 048
     Dates: start: 2021
  4. GRISEOFULVIN [Suspect]
     Active Substance: GRISEOFULVIN
     Indication: Trichophytosis

REACTIONS (3)
  - Pathogen resistance [Unknown]
  - Drug resistance [Unknown]
  - Drug ineffective [Unknown]

NARRATIVE: CASE EVENT DATE: 20210101
